FAERS Safety Report 5805066-X (Version None)
Quarter: 2008Q3

REPORT INFORMATION
  Report Type: 
  Country: None (occurrence: None)
  Receive Date: 20080709
  Receipt Date: 20080703
  Transmission Date: 20090109
  Serious: Yes (Hospitalization, Other)
  Sender: FDA-Public Use
  Company Number: BR-PFIZER INC-2008055932

PATIENT
  Sex: Female

DRUGS (5)
  1. LIPITOR [Suspect]
     Indication: BLOOD CHOLESTEROL INCREASED
     Route: 048
  2. EZETROL [Concomitant]
  3. ACETYLSALICYLIC ACID SRT [Concomitant]
  4. CALCIUM [Concomitant]
  5. ALL OTHER THERAPEUTIC PRODUCTS [Concomitant]

REACTIONS (3)
  - ILL-DEFINED DISORDER [None]
  - INTRAOCULAR PRESSURE INCREASED [None]
  - PAIN [None]
